FAERS Safety Report 22351394 (Version 1)
Quarter: 2023Q2

REPORT INFORMATION
  Report Type: Spontaneous
  Country: US (occurrence: US)
  Receive Date: 20230522
  Receipt Date: 20230522
  Transmission Date: 20230722
  Serious: Yes (Hospitalization)
  Sender: FDA-Public Use
  Company Number: US-ELI_LILLY_AND_COMPANY-US202305010567

PATIENT
  Age: 88 Year
  Sex: Female

DRUGS (4)
  1. HUMULIN R [Suspect]
     Active Substance: INSULIN HUMAN
     Indication: Product used for unknown indication
     Dosage: 10 U, UNKNOWN
     Route: 058
     Dates: start: 1998
  2. HUMULIN R [Suspect]
     Active Substance: INSULIN HUMAN
     Dosage: 10 U, UNKNOWN
     Route: 058
  3. HUMULIN N [Suspect]
     Active Substance: INSULIN HUMAN
     Indication: Product used for unknown indication
     Dosage: 19 U, UNKNOWN, 18 OR 19 UNITS
     Route: 058
     Dates: start: 1998
  4. HUMULIN N [Suspect]
     Active Substance: INSULIN HUMAN
     Dosage: 19 U, UNKNOWN, 18 OR 19 UNITS
     Route: 058

REACTIONS (4)
  - Arthropathy [Unknown]
  - Diabetic eye disease [Unknown]
  - Incorrect dose administered [Unknown]
  - Wrong technique in product usage process [Unknown]

NARRATIVE: CASE EVENT DATE: 20230517
